FAERS Safety Report 21982113 (Version 6)
Quarter: 2023Q2

REPORT INFORMATION
  Report Type: Spontaneous
  Country: CA (occurrence: CA)
  Receive Date: 20230213
  Receipt Date: 20230615
  Transmission Date: 20230722
  Serious: Yes (Other)
  Sender: FDA-Public Use
  Company Number: CA-CELLTRION INC.-2022CA021142

PATIENT

DRUGS (9)
  1. INFLECTRA [Suspect]
     Active Substance: INFLIXIMAB-DYYB
     Indication: Crohn^s disease
     Dosage: 700 MG, WEEKS 0,2,6 THEN Q 8 WEEKS
     Route: 042
     Dates: start: 20221118
  2. INFLECTRA [Suspect]
     Active Substance: INFLIXIMAB-DYYB
     Dosage: 700 MG, WEEKS 0,2,6 THEN Q 8 WEEKS
     Route: 042
     Dates: start: 20221202
  3. INFLECTRA [Suspect]
     Active Substance: INFLIXIMAB-DYYB
     Dosage: 700 MG, WEEKS 0,2,6 THEN Q 8 WEEKS
     Route: 042
     Dates: start: 20221230
  4. INFLECTRA [Suspect]
     Active Substance: INFLIXIMAB-DYYB
     Dosage: 700MG, EVERY 8 WEEK
     Route: 042
     Dates: start: 20230224
  5. INFLECTRA [Suspect]
     Active Substance: INFLIXIMAB-DYYB
     Dosage: 1370 MG, EVERY 8 WEEK
     Route: 042
     Dates: start: 20230421
  6. INFLECTRA [Suspect]
     Active Substance: INFLIXIMAB-DYYB
     Dosage: 1 DF,DOSAGE INFO: UNKNOWN AMOUNT INFUSED
     Route: 042
     Dates: start: 20230421
  7. CIPROFLOXACIN [Concomitant]
     Active Substance: CIPROFLOXACIN
     Dosage: UNK
  8. HYDROMORPHONE [Concomitant]
     Active Substance: HYDROMORPHONE
     Dosage: UNK
  9. METRONIDAZOLE [Concomitant]
     Active Substance: METRONIDAZOLE
     Dosage: UNK

REACTIONS (15)
  - Iron deficiency [Unknown]
  - Feeling hot [Recovered/Resolved]
  - Flushing [Recovered/Resolved]
  - Dyspnoea [Recovered/Resolved]
  - Swelling face [Recovered/Resolved]
  - Drug specific antibody present [Unknown]
  - Condition aggravated [Not Recovered/Not Resolved]
  - Vision blurred [Recovered/Resolved]
  - Fistula [Not Recovered/Not Resolved]
  - Body temperature fluctuation [Recovered/Resolved]
  - Chills [Recovered/Resolved]
  - Abscess [Unknown]
  - Blood pressure fluctuation [Unknown]
  - Off label use [Unknown]
  - Intentional product use issue [Unknown]

NARRATIVE: CASE EVENT DATE: 20221118
